FAERS Safety Report 7506254-7 (Version None)
Quarter: 2011Q2

REPORT INFORMATION
  Report Type: 
  Country: None (occurrence: None)
  Receive Date: 20110526
  Receipt Date: 20110513
  Transmission Date: 20111010
  Serious: Yes (Other)
  Sender: FDA-Public Use
  Company Number: PHHY2011CA41273

PATIENT

DRUGS (1)
  1. RASILEZ [Suspect]
     Dosage: UNK UKN, UNK

REACTIONS (2)
  - RENAL FAILURE [None]
  - ACCIDENT [None]
